FAERS Safety Report 9559390 (Version 2)
Quarter: 2014Q1

REPORT INFORMATION
  Report Type: Spontaneous
  Country: US (occurrence: None)
  Receive Date: 20130906
  Receipt Date: 20131205
  Transmission Date: 20141002
  Serious: Yes (Other)
  Sender: FDA-Public Use
  Company Number: 163-POMAL-13074674

PATIENT
  Age: 65 Year
  Sex: Male

DRUGS (4)
  1. POMALYST [Suspect]
     Indication: PLASMA CELL MYELOMA
     Dosage: 21 IN 21 D, PERMANENTLY
     Route: 048
     Dates: start: 201307
  2. DEXAMETHASONE (DEXAMETHASONE) [Concomitant]
  3. RED BLOOD CELL TRANSFUSIONS (BLOOD TRANSFUSION, AUXILIARY PRODUCTS) [Concomitant]
  4. ALLOPURINOL (ALLOPURINOL) [Concomitant]

REACTIONS (2)
  - Skin reaction [None]
  - Hypersensitivity [None]
